FAERS Safety Report 5429956-5 (Version None)
Quarter: 2007Q3

REPORT INFORMATION
  Report Type: 
  Country: None (occurrence: None)
  Receive Date: 20070829
  Receipt Date: 20070822
  Transmission Date: 20080115
  Serious: Yes (Congenital Anomaly)
  Sender: FDA-Public Use
  Company Number: US-BOEHRINGER INGELHEIM PHARMACEUTICALS, INC.-2007-BP-19829BP

PATIENT
  Sex: Female

DRUGS (6)
  1. VIRAMUNE [Suspect]
     Route: 015
  2. INDINAVIR [Suspect]
     Route: 015
  3. RITONAVIR [Suspect]
     Route: 015
  4. NELFINAVIR [Suspect]
     Route: 015
  5. 3TC [Suspect]
     Route: 015
  6. AZT [Suspect]
     Route: 015

REACTIONS (1)
  - FALLOT'S TETRALOGY [None]
